FAERS Safety Report 10514862 (Version 1)
Quarter: 2014Q4

REPORT INFORMATION
  Report Type: Report from Study
  Country: US (occurrence: US)
  Receive Date: 20141013
  Receipt Date: 20141013
  Transmission Date: 20150528
  Serious: Yes (Death)
  Sender: FDA-Public Use
  Company Number: US-BAXTER-2014BAX061537

PATIENT

DRUGS (3)
  1. FEIBA NF [Suspect]
     Active Substance: ANTI-INHIBITOR COAGULANT COMPLEX
     Dosage: MEDIAN DOSE  14.9U/KG
     Route: 065
  2. FEIBA NF [Suspect]
     Active Substance: ANTI-INHIBITOR COAGULANT COMPLEX
     Indication: HAEMORRHAGE
     Dosage: AVERAGE TOTAL DOSE  18.6U/KG (12.4U/KG)
     Route: 065
  3. FEIBA NF [Suspect]
     Active Substance: ANTI-INHIBITOR COAGULANT COMPLEX
     Indication: POST PROCEDURAL HAEMORRHAGE
     Dosage: LOW DOSE OF 490 UNITS, A MODERATE DOSE OF APPROXIMATELY 600 UNITS, OR A HIGH DOSE OF 900-1,000 UNITS
     Route: 065

REACTIONS (1)
  - Multi-organ failure [Fatal]
